FAERS Safety Report 25354429 (Version 1)
Quarter: 2025Q2

REPORT INFORMATION
  Report Type: Spontaneous
  Country: AU (occurrence: AU)
  Receive Date: 20250523
  Receipt Date: 20250523
  Transmission Date: 20250717
  Serious: Yes (Life-Threatening, Hospitalization, Other)
  Sender: REGENERON
  Company Number: AU-Medison-001317

PATIENT
  Age: 59 Year

DRUGS (2)
  1. LIBTAYO [Suspect]
     Active Substance: CEMIPLIMAB-RWLC
     Indication: Product used for unknown indication
     Dates: start: 202411
  2. METOCLOPRAMIDE [Suspect]
     Active Substance: METOCLOPRAMIDE
     Indication: Product used for unknown indication

REACTIONS (17)
  - Multiple organ dysfunction syndrome [Unknown]
  - Cardiomyopathy [Unknown]
  - Troponin abnormal [Unknown]
  - Myocarditis [Unknown]
  - Dyspnoea [Unknown]
  - Tachycardia [Unknown]
  - Pleural effusion [Unknown]
  - Skin disorder [Unknown]
  - Thyroxine abnormal [Unknown]
  - Weight decreased [Unknown]
  - Dizziness postural [Unknown]
  - Fall [Unknown]
  - Ligament sprain [Unknown]
  - Wheezing [Recovering/Resolving]
  - Nausea [Unknown]
  - Vomiting [Unknown]
  - Fatigue [Unknown]
